FAERS Safety Report 10643687 (Version 1)
Quarter: 2014Q4

REPORT INFORMATION
  Report Type: Spontaneous
  Country: US (occurrence: US)
  Receive Date: 20141210
  Receipt Date: 20141210
  Transmission Date: 20150529
  Serious: No
  Sender: FDA-Public Use
  Company Number: US-NOVEN-14US009231

PATIENT
  Age: 81 Year
  Sex: Female

DRUGS (11)
  1. STOOL SOFTENER [Concomitant]
     Active Substance: DOCUSATE CALCIUM
     Dosage: UNK
  2. POTASSIUM [Concomitant]
     Active Substance: POTASSIUM
     Dosage: UNK
  3. PROBIOTIC ACIDOPHILUS              /00079701/ [Concomitant]
     Dosage: UNK
  4. ACETYLSALICYLATE CALCIUM [Concomitant]
     Dosage: UNK
  5. VITAMIN D                          /00107901/ [Concomitant]
     Active Substance: ERGOCALCIFEROL
     Dosage: UNK
  6. DIOVAN [Concomitant]
     Active Substance: VALSARTAN
     Dosage: UNK
  7. PRILOSEC [Concomitant]
     Active Substance: OMEPRAZOLE MAGNESIUM
     Dosage: UNK
  8. FENTANYL. [Suspect]
     Active Substance: FENTANYL
     Indication: ARTHRALGIA
     Dosage: 25 UG/HR Q 3DAYS
     Route: 062
     Dates: start: 201312, end: 20140313
  9. NADOLOL. [Concomitant]
     Active Substance: NADOLOL
     Dosage: UNK
  10. ACETYLCYSTEINE. [Concomitant]
     Active Substance: ACETYLCYSTEINE
     Dosage: UNK
  11. ALLOPURINOL. [Concomitant]
     Active Substance: ALLOPURINOL
     Dosage: UNK

REACTIONS (1)
  - Feeling hot [Not Recovered/Not Resolved]
